FAERS Safety Report 19983783 (Version 1)
Quarter: 2021Q4

REPORT INFORMATION
  Report Type: Spontaneous
  Country: US (occurrence: US)
  Receive Date: 20211021
  Receipt Date: 20211021
  Transmission Date: 20220303
  Serious: Yes (Hospitalization)
  Sender: FDA-Public Use
  Company Number: None

PATIENT
  Sex: Male

DRUGS (2)
  1. INLYTA [Suspect]
     Active Substance: AXITINIB
     Indication: Chronic kidney disease
     Route: 048
     Dates: start: 202110, end: 202110
  2. INLYTA [Suspect]
     Active Substance: AXITINIB

REACTIONS (1)
  - Diarrhoea [None]
